FAERS Safety Report 17143619 (Version 2)
Quarter: 2019Q4

REPORT INFORMATION
  Report Type: Spontaneous
  Country: SE (occurrence: SE)
  Receive Date: 20191211
  Receipt Date: 20191226
  Transmission Date: 20200122
  Serious: Yes (Hospitalization, Other)
  Sender: FDA-Public Use
  Company Number: SE-AUROBINDO-AUR-APL-2019-104559

PATIENT
  Age: 25 Year
  Sex: Female

DRUGS (6)
  1. IPREN [Suspect]
     Active Substance: IBUPROFEN
     Indication: PRODUCT USED FOR UNKNOWN INDICATION
     Dosage: 4.8 GRAM
     Route: 048
     Dates: start: 20180803, end: 20180803
  2. OXASCAND [Suspect]
     Active Substance: OXAZEPAM
     Indication: PRODUCT USED FOR UNKNOWN INDICATION
     Dosage: 75 MILLIGRAM
     Route: 048
     Dates: start: 20180803, end: 20180803
  3. PROPAVAN [Suspect]
     Active Substance: PROPIOMAZINE
     Indication: PRODUCT USED FOR UNKNOWN INDICATION
     Dosage: ^MAX 30^
     Route: 048
     Dates: start: 20180803, end: 20180803
  4. SERTRALINE [Suspect]
     Active Substance: SERTRALINE HYDROCHLORIDE
     Indication: PRODUCT USED FOR UNKNOWN INDICATION
     Dosage: 950 MILLIGRAM,19X50 MG
     Route: 048
     Dates: start: 20180803, end: 20180803
  5. ATARAX [Suspect]
     Active Substance: HYDROXYZINE HYDROCHLORIDE
     Indication: PRODUCT USED FOR UNKNOWN INDICATION
     Dosage: 210 MILLIGRAM
     Route: 048
     Dates: start: 20180803, end: 20180803
  6. CIRCADIN [Suspect]
     Active Substance: MELATONIN
     Indication: PRODUCT USED FOR UNKNOWN INDICATION
     Dosage: UNK
     Route: 048
     Dates: start: 20180803, end: 20180803

REACTIONS (6)
  - Intentional self-injury [Unknown]
  - Areflexia [Unknown]
  - Hypopnoea [Unknown]
  - Hypotension [Unknown]
  - Intentional overdose [Unknown]
  - Loss of consciousness [Unknown]

NARRATIVE: CASE EVENT DATE: 20180803
